FAERS Safety Report 5095480-5 (Version None)
Quarter: 2006Q3

REPORT INFORMATION
  Report Type: 
  Country: None (occurrence: None)
  Receive Date: 20060901
  Receipt Date: 20060901
  Transmission Date: 20061208
  Serious: No
  Sender: FDA-Public Use
  Company Number: None

PATIENT
  Sex: Male
  Weight: 69.8539 kg

DRUGS (6)
  1. FLUOXETINE [Suspect]
     Indication: MAJOR DEPRESSION
     Dosage: 20 MG TID ORAL
     Route: 048
     Dates: start: 20060511
  2. FLUOXETINE [Suspect]
     Indication: STRESS
     Dosage: 20 MG TID ORAL
     Route: 048
     Dates: start: 20060511
  3. TRAZODONE 100MG, PLIVA [Suspect]
     Indication: INSOMNIA
     Dosage: 100 MG  1/2 - 1 PO QHS  ORAL
     Route: 048
     Dates: start: 20060702
  4. AMITRIPTYLINE HCL [Concomitant]
  5. MAXALT-MLT [Concomitant]
  6. AMIDRINE [Concomitant]

REACTIONS (4)
  - FEELING DRUNK [None]
  - HEART RATE INCREASED [None]
  - SEROTONIN SYNDROME [None]
  - TREMOR [None]
